FAERS Safety Report 11418167 (Version 1)
Quarter: 2015Q3

REPORT INFORMATION
  Report Type: Spontaneous
  Country: US (occurrence: US)
  Receive Date: 20150825
  Receipt Date: 20150825
  Transmission Date: 20151125
  Serious: Yes (Other)
  Sender: FDA-Public Use
  Company Number: US-PURDUE-USA-2015-0124842

PATIENT
  Sex: Female

DRUGS (1)
  1. HYSINGLA ER [Suspect]
     Active Substance: HYDROCODONE BITARTRATE
     Indication: PRODUCT USED FOR UNKNOWN INDICATION
     Dosage: 40 MG, Q24H
     Route: 048
     Dates: end: 20150705

REACTIONS (11)
  - Dizziness [Unknown]
  - Loss of consciousness [Unknown]
  - Anxiety [Unknown]
  - Insomnia [Unknown]
  - Headache [Unknown]
  - Unevaluable event [Unknown]
  - Gastrooesophageal reflux disease [Unknown]
  - Tinnitus [Unknown]
  - Asthma [Unknown]
  - Muscle spasms [Unknown]
  - Blood pressure increased [Unknown]
